FAERS Safety Report 23524926 (Version 5)
Quarter: 2025Q2

REPORT INFORMATION
  Report Type: Report from Study
  Country: US (occurrence: US)
  Receive Date: 20240215
  Receipt Date: 20250514
  Transmission Date: 20250717
  Serious: Yes (Other)
  Sender: TAKEDA
  Company Number: US-TAKEDA-2023TUS063460

PATIENT
  Sex: Female

DRUGS (4)
  1. TEDUGLUTIDE [Suspect]
     Active Substance: TEDUGLUTIDE
     Indication: Crohn^s disease
     Dosage: 0.42 MILLILITER, QD
     Dates: start: 20230614
  2. TEDUGLUTIDE [Suspect]
     Active Substance: TEDUGLUTIDE
     Indication: Short-bowel syndrome
     Dosage: 0.42 MILLILITER, QD
     Dates: start: 202306
  3. TEDUGLUTIDE [Suspect]
     Active Substance: TEDUGLUTIDE
  4. TEDUGLUTIDE [Suspect]
     Active Substance: TEDUGLUTIDE
     Dosage: 0.45 MILLILITER, QD

REACTIONS (22)
  - Nephrolithiasis [Unknown]
  - Inflammatory bowel disease [Unknown]
  - Gastroenteritis viral [Unknown]
  - Blood creatinine abnormal [Unknown]
  - Pain [Unknown]
  - Discomfort [Unknown]
  - Asthenia [Unknown]
  - Gastrointestinal stoma output increased [Unknown]
  - Insurance issue [Unknown]
  - Gastrointestinal stoma output abnormal [Unknown]
  - Drug ineffective [Unknown]
  - Muscle spasms [Recovering/Resolving]
  - Blood iron decreased [Unknown]
  - Product dose omission issue [Unknown]
  - Injection site pain [Unknown]
  - Injection site erythema [Recovered/Resolved]
  - Influenza [Unknown]
  - Nausea [Recovered/Resolved]
  - Decreased appetite [Unknown]
  - Vomiting [Recovered/Resolved]
  - Gastrointestinal stoma complication [Recovering/Resolving]
  - Abdominal pain [Recovered/Resolved]
